FAERS Safety Report 4267130-9 (Version None)
Quarter: 2004Q1

REPORT INFORMATION
  Report Type: 
  Country: None (occurrence: None)
  Receive Date: 20040107
  Receipt Date: 20031225
  Transmission Date: 20041129
  Serious: Yes (Other)
  Sender: FDA-Public Use
  Company Number: DSK-2002-02209

PATIENT
  Age: 66 Year
  Sex: Male

DRUGS (10)
  1. CLOPIDOGREL BISULFATE [Suspect]
     Dosage: 75 MG, PER ORAL
     Route: 048
     Dates: start: 20020117
  2. FAMOTIDINE [Suspect]
     Dosage: 20 MG, PER ORAL
     Route: 048
     Dates: start: 20020312, end: 20020312
  3. MUCOSTA (REBAMIPIDE) [Suspect]
     Dosage: 100 MG, PER ORAL
     Route: 048
     Dates: start: 20020312, end: 20020312
  4. NAUZELIN (DOMPERIDONE) [Suspect]
     Dosage: 10 MG, PER ORAL
     Route: 048
     Dates: start: 20020312, end: 20020312
  5. BLOPRESS (CANDESARTAN CILEXETIL) [Concomitant]
  6. ALLOPURINOL [Concomitant]
  7. GANATON [Concomitant]
  8. ELASZYM (ELASTASE) [Concomitant]
  9. NIVADIL (NILVADIPINE) [Concomitant]
  10. VOLTAREN [Concomitant]

REACTIONS (12)
  - ALANINE AMINOTRANSFERASE INCREASED [None]
  - ASPARTATE AMINOTRANSFERASE INCREASED [None]
  - BLOOD ALKALINE PHOSPHATASE INCREASED [None]
  - BLOOD BILIRUBIN INCREASED [None]
  - BLOOD LACTATE DEHYDROGENASE INCREASED [None]
  - DYSPNOEA [None]
  - GAMMA-GLUTAMYLTRANSFERASE INCREASED [None]
  - HEPATIC FUNCTION ABNORMAL [None]
  - INFLUENZA LIKE ILLNESS [None]
  - JAUNDICE [None]
  - MALAISE [None]
  - PYREXIA [None]
